FAERS Safety Report 9145581 (Version 3)
Quarter: 2014Q1

REPORT INFORMATION
  Report Type: Spontaneous
  Country: US (occurrence: US)
  Receive Date: 20130307
  Receipt Date: 20140327
  Transmission Date: 20141002
  Serious: Yes (Hospitalization, Other)
  Sender: FDA-Public Use
  Company Number: US-PFIZER INC-2013075070

PATIENT
  Age: 65 Year
  Sex: Female
  Weight: 109 kg

DRUGS (11)
  1. EFFEXOR [Suspect]
     Dosage: 300 MG (2 TABLETS OF 150 MG), DAILY
     Route: 048
  2. EFFEXOR [Suspect]
     Dosage: 150 MG, DAILY
     Route: 048
     Dates: start: 20130218, end: 20130221
  3. EFFEXOR [Suspect]
     Dosage: 300 MG (2 TABLETS OF 150 MG), DAILY
     Route: 048
     Dates: start: 20130222, end: 20130225
  4. EFFEXOR XR [Suspect]
     Dosage: 350 MG, UNK
  5. EFFEXOR XR [Suspect]
     Dosage: 450 MG, UNK
  6. WELLBUTRIN [Suspect]
     Dosage: 300 MG, UNK
  7. LORAZEPAM [Concomitant]
     Indication: DEPRESSION
     Dosage: 5 MG, DAILY
  8. LORAZEPAM [Concomitant]
     Indication: ANXIETY
  9. TRAZODONE [Concomitant]
     Indication: DEPRESSION
     Dosage: 350 MG, DAILY
  10. TRAZODONE [Concomitant]
     Indication: SLEEP DISORDER
  11. METHYLPHENIDATE [Concomitant]
     Indication: ATTENTION DEFICIT/HYPERACTIVITY DISORDER
     Dosage: 10 MG, 2X/DAY

REACTIONS (8)
  - Suicidal ideation [Unknown]
  - Suicidal ideation [Recovered/Resolved]
  - Rash [Recovering/Resolving]
  - Bone pain [Unknown]
  - Myalgia [Unknown]
  - Dizziness [Unknown]
  - Drug withdrawal syndrome [Unknown]
  - Visual impairment [Unknown]
